FAERS Safety Report 18319845 (Version 2)
Quarter: 2020Q4

REPORT INFORMATION
  Report Type: Spontaneous
  Country: US (occurrence: US)
  Receive Date: 20200928
  Receipt Date: 20201006
  Transmission Date: 20210113
  Serious: No
  Sender: FDA-Public Use
  Company Number: US-MYLANLABS-2020M1081028

PATIENT
  Sex: Female
  Weight: 67 kg

DRUGS (1)
  1. XULANE [Suspect]
     Active Substance: ETHINYL ESTRADIOL\NORELGESTROMIN
     Indication: MENSTRUATION IRREGULAR
     Dosage: 1 DOSAGE FORM, 1 PATCH/ WEEK
     Route: 062

REACTIONS (2)
  - Product use in unapproved indication [Not Recovered/Not Resolved]
  - Product adhesion issue [Recovering/Resolving]
